FAERS Safety Report 6083261-5 (Version None)
Quarter: 2009Q1

REPORT INFORMATION
  Report Type: 
  Country: None (occurrence: None)
  Receive Date: 20090213
  Receipt Date: 20090213
  Transmission Date: 20090719
  Serious: Yes (Hospitalization, Disabling)
  Sender: FDA-Public Use
  Company Number: None

PATIENT
  Sex: Female

DRUGS (2)
  1. TRINESSA [Suspect]
     Indication: TURNER'S SYNDROME
     Dosage: 1 TAB ONCE DAILY PO
     Route: 048
  2. CELEXA [Concomitant]

REACTIONS (5)
  - DEEP VEIN THROMBOSIS [None]
  - FLANK PAIN [None]
  - PAIN [None]
  - SWELLING [None]
  - THROMBOPHLEBITIS [None]
